FAERS Safety Report 13099337 (Version 4)
Quarter: 2017Q1

REPORT INFORMATION
  Report Type: Spontaneous
  Country: ES (occurrence: ES)
  Receive Date: 20170109
  Receipt Date: 20170112
  Transmission Date: 20170428
  Serious: Yes (Life-Threatening, Hospitalization)
  Sender: FDA-Public Use
  Company Number: ALCN2017ES000442

PATIENT
  Age: 7 Year
  Sex: Male

DRUGS (4)
  1. SALBUTAMOL [Interacting]
     Active Substance: ALBUTEROL
     Dosage: 2 OT, (2 PUFFS)
     Route: 065
  2. TIMOLOL. [Suspect]
     Active Substance: TIMOLOL
     Indication: INTRAOCULAR PRESSURE INCREASED
     Dosage: UNK
     Route: 061
  3. SALBUTAMOL [Interacting]
     Active Substance: ALBUTEROL
     Indication: ASTHMA
     Dosage: UNK
     Route: 065
  4. SALBUTAMOL [Interacting]
     Active Substance: ALBUTEROL
     Indication: DYSPNOEA
     Dosage: UNK, Q8H
     Route: 065

REACTIONS (5)
  - Asthma [Unknown]
  - Drug interaction [Unknown]
  - Bronchospasm [Unknown]
  - Loss of consciousness [Unknown]
  - Bradypnoea [Unknown]
